FAERS Safety Report 4384922-6 (Version None)
Quarter: 2004Q2

REPORT INFORMATION
  Report Type: 
  Country: None (occurrence: None)
  Receive Date: 20040625
  Receipt Date: 20040503
  Transmission Date: 20050107
  Serious: Yes (Other)
  Sender: FDA-Public Use
  Company Number: FR-ROCHE-366723

PATIENT
  Age: 50 Year
  Sex: Female
  Weight: 63 kg

DRUGS (4)
  1. XENICAL [Suspect]
     Indication: OVERWEIGHT
     Dosage: DOSAGE REGIMEN REPORTED AS 3 CAPSULES.
     Route: 065
     Dates: start: 20040405, end: 20040420
  2. PRETERAX [Concomitant]
     Indication: HYPERTENSION
     Dosage: DOSAGE REGIMEN REPORTED AS 1 TABLET.
     Route: 065
     Dates: start: 20040320
  3. ELISOR [Concomitant]
     Dosage: DOSAGE REGIMEN REPORTED AS 20.
     Route: 065
     Dates: start: 20040320
  4. VASTAREL [Concomitant]
     Indication: VERTIGO
     Dosage: DOSAGE REGIMEN REPORTED AS 70MG.
     Route: 065
     Dates: start: 20040320

REACTIONS (2)
  - COUGH [None]
  - NOCTURNAL DYSPNOEA [None]
